FAERS Safety Report 17673962 (Version 1)
Quarter: 2020Q2

REPORT INFORMATION
  Report Type: Spontaneous
  Country: US (occurrence: US)
  Receive Date: 20200416
  Receipt Date: 20200416
  Transmission Date: 20200714
  Serious: No
  Sender: FDA-Public Use
  Company Number: US-TEVA-2020-US-1224047

PATIENT
  Sex: Female

DRUGS (1)
  1. AJOVY [Suspect]
     Active Substance: FREMANEZUMAB-VFRM
     Indication: MIGRAINE
     Route: 065
     Dates: start: 20190126, end: 201905

REACTIONS (14)
  - Impaired quality of life [Unknown]
  - Migraine [Unknown]
  - Patient dissatisfaction with treatment [Unknown]
  - Menorrhagia [Unknown]
  - Drug ineffective [Unknown]
  - Arthralgia [Unknown]
  - Therapeutic response shortened [Unknown]
  - Feeling abnormal [Unknown]
  - Malaise [Unknown]
  - Injection site pain [Unknown]
  - Fatigue [Unknown]
  - Pain [Unknown]
  - Polymenorrhoea [Unknown]
  - Frustration tolerance decreased [Unknown]

NARRATIVE: CASE EVENT DATE: 2019
